FAERS Safety Report 10239473 (Version 1)
Quarter: 2014Q2

REPORT INFORMATION
  Report Type: Spontaneous
  Country: US (occurrence: US)
  Receive Date: 20140616
  Receipt Date: 20140616
  Transmission Date: 20141212
  Serious: No
  Sender: FDA-Public Use
  Company Number: US-LUNDBECK-DKLU1100307

PATIENT
  Sex: Female

DRUGS (2)
  1. SABRIL (FOR ORAL SOLUTION) [Suspect]
     Indication: INFANTILE SPASMS
  2. SABRIL (FOR ORAL SOLUTION) [Suspect]
     Dates: start: 20120223

REACTIONS (3)
  - Mood swings [Unknown]
  - Agitation [Unknown]
  - Abnormal behaviour [Unknown]
